FAERS Safety Report 13569135 (Version 22)
Quarter: 2019Q3

REPORT INFORMATION
  Report Type: Report from Study
  Country: CA (occurrence: CA)
  Receive Date: 20170522
  Receipt Date: 20190711
  Transmission Date: 20191004
  Serious: Yes (Hospitalization)
  Sender: FDA-Public Use
  Company Number: PHHY2017CA073127

PATIENT
  Age: 37 Year
  Sex: Female

DRUGS (13)
  1. COSENTYX [Suspect]
     Active Substance: SECUKINUMAB
     Dosage: 300 MG, QMO
     Route: 058
     Dates: start: 20171016
  2. COSENTYX [Suspect]
     Active Substance: SECUKINUMAB
     Indication: PSORIATIC ARTHROPATHY
     Dosage: 300 MG, QW
     Route: 058
     Dates: start: 20170413, end: 20170504
  3. COSENTYX [Suspect]
     Active Substance: SECUKINUMAB
     Dosage: UNK
     Route: 065
     Dates: start: 20180225
  4. COSENTYX [Suspect]
     Active Substance: SECUKINUMAB
     Dosage: 300 MG, QMO
     Route: 058
     Dates: start: 20180525
  5. COSENTYX [Suspect]
     Active Substance: SECUKINUMAB
     Dosage: 300 MG, QMO
     Route: 058
     Dates: start: 20181025
  6. COSENTYX [Suspect]
     Active Substance: SECUKINUMAB
     Indication: PSORIASIS
     Dosage: 300 MG, QMO
     Route: 058
     Dates: start: 20170511
  7. COSENTYX [Suspect]
     Active Substance: SECUKINUMAB
     Dosage: 300 MG, QMO
     Route: 058
     Dates: start: 20170711
  8. COSENTYX [Suspect]
     Active Substance: SECUKINUMAB
     Dosage: 300 MG, QMO
     Route: 058
     Dates: start: 20180325
  9. GLUCOSAMINE [Suspect]
     Active Substance: GLUCOSAMINE
     Indication: PRODUCT USED FOR UNKNOWN INDICATION
     Dosage: UNK
     Route: 065
     Dates: start: 201706
  10. COSENTYX [Suspect]
     Active Substance: SECUKINUMAB
     Dosage: UNK
     Route: 065
     Dates: start: 20180123
  11. COSENTYX [Suspect]
     Active Substance: SECUKINUMAB
     Dosage: 300 MG, QMO
     Route: 058
     Dates: start: 20171211
  12. COSENTYX [Suspect]
     Active Substance: SECUKINUMAB
     Dosage: 300 MG, QMO
     Route: 058
     Dates: start: 20180825
  13. COSENTYX [Suspect]
     Active Substance: SECUKINUMAB
     Dosage: 300 MG, QMO
     Route: 058
     Dates: start: 20190125

REACTIONS (45)
  - Irritable bowel syndrome [Unknown]
  - Flatulence [Unknown]
  - Loose tooth [Unknown]
  - Pruritus [Unknown]
  - Diarrhoea [Unknown]
  - Dysstasia [Not Recovered/Not Resolved]
  - Bone pain [Unknown]
  - Pain [Unknown]
  - Myalgia [Unknown]
  - Decreased appetite [Unknown]
  - Constipation [Unknown]
  - Asthenia [Unknown]
  - Chills [Unknown]
  - Animal bite [Unknown]
  - Dehydration [Unknown]
  - Impaired healing [Unknown]
  - Vomiting [Unknown]
  - Arthropathy [Unknown]
  - Injection site pain [Unknown]
  - Ligament sprain [Recovering/Resolving]
  - Arthralgia [Unknown]
  - Fatigue [Unknown]
  - Dyspepsia [Unknown]
  - Muscle spasms [Unknown]
  - Tremor [Unknown]
  - Cholelithiasis [Unknown]
  - Tooth infection [Unknown]
  - Muscle disorder [Unknown]
  - Humidity intolerance [Unknown]
  - Mobility decreased [Unknown]
  - Vessel puncture site bruise [Unknown]
  - Injection site injury [Unknown]
  - Gastroenteritis viral [Unknown]
  - Joint injury [Recovering/Resolving]
  - Procedural pain [Unknown]
  - Lactose intolerance [Unknown]
  - Neck pain [Unknown]
  - Movement disorder [Unknown]
  - Psoriasis [Not Recovered/Not Resolved]
  - Drug ineffective [Unknown]
  - Discomfort [Unknown]
  - Abdominal distension [Unknown]
  - Gait disturbance [Unknown]
  - Abdominal pain [Unknown]
  - Influenza [Unknown]

NARRATIVE: CASE EVENT DATE: 201704
